FAERS Safety Report 24042083 (Version 2)
Quarter: 2024Q3

REPORT INFORMATION
  Report Type: Spontaneous
  Country: IE (occurrence: IE)
  Receive Date: 20240702
  Receipt Date: 20240809
  Transmission Date: 20241016
  Serious: Yes (Other)
  Sender: TEVA
  Company Number: IE-TEVA-VS-3215339

PATIENT
  Age: 12 Year
  Sex: Male

DRUGS (3)
  1. DEXAMETHASONE [Suspect]
     Active Substance: DEXAMETHASONE
     Indication: Rosai-Dorfman syndrome
     Dosage: HIGH DOSE
     Route: 065
  2. ENCORAFENIB [Suspect]
     Active Substance: ENCORAFENIB
     Indication: Rosai-Dorfman syndrome
     Route: 065
  3. BINIMETINIB [Suspect]
     Active Substance: BINIMETINIB
     Indication: Rosai-Dorfman syndrome
     Route: 065

REACTIONS (2)
  - Uveitis [Unknown]
  - Drug ineffective [Unknown]
